FAERS Safety Report 4451543-6 (Version None)
Quarter: 2004Q3

REPORT INFORMATION
  Report Type: 
  Country: None (occurrence: None)
  Receive Date: 20040915
  Receipt Date: 20040908
  Transmission Date: 20050211
  Serious: No
  Sender: FDA-Public Use
  Company Number: TPA2004A01022

PATIENT
  Age: 57 Year
  Sex: Female
  Weight: 86.637 kg

DRUGS (6)
  1. ACTOS [Suspect]
     Indication: DIABETES MELLITUS NON-INSULIN-DEPENDENT
     Dosage: 15 MG, 1 IN 1 D, PER ORAL;
     Route: 048
     Dates: start: 20030101
  2. ACTOS [Suspect]
     Indication: DIABETES MELLITUS NON-INSULIN-DEPENDENT
     Dosage: 15 MG, 1 IN 1 D, PER ORAL;
     Route: 048
     Dates: start: 20040618
  3. GLUCOPHAGE [Concomitant]
  4. PREMARIN [Concomitant]
  5. ZOLOFT [Concomitant]
  6. RISPERDAL [Concomitant]

REACTIONS (2)
  - BUNION [None]
  - TOE DEFORMITY [None]
